FAERS Safety Report 4887117-2 (Version None)
Quarter: 2006Q1

REPORT INFORMATION
  Report Type: 
  Country: None (occurrence: None)
  Receive Date: 20060120
  Receipt Date: 20050317
  Transmission Date: 20060701
  Serious: Yes (Hospitalization)
  Sender: FDA-Public Use
  Company Number: US-MERCK-0503USA03429

PATIENT
  Age: 62 Year
  Sex: Male
  Weight: 102 kg

DRUGS (1)
  1. VIOXX [Suspect]
     Route: 048

REACTIONS (18)
  - ANAL FISSURE [None]
  - BACK PAIN [None]
  - BLOOD TESTOSTERONE DECREASED [None]
  - CHEST PAIN [None]
  - DIABETES MELLITUS NON-INSULIN-DEPENDENT [None]
  - EAR PAIN [None]
  - ERECTILE DYSFUNCTION [None]
  - HAEMATOCHEZIA [None]
  - HAEMORRHOIDS [None]
  - HYPERCHOLESTEROLAEMIA [None]
  - INJURY [None]
  - LACUNAR INFARCTION [None]
  - LIVER FUNCTION TEST ABNORMAL [None]
  - NOCTURIA [None]
  - PROSTATE CANCER [None]
  - TRANSIENT ISCHAEMIC ATTACK [None]
  - UMBILICAL HERNIA [None]
  - VISION BLURRED [None]
